FAERS Safety Report 8079173-8 (Version None)
Quarter: 2012Q1

REPORT INFORMATION
  Report Type: 
  Country: None (occurrence: None)
  Receive Date: 20120128
  Receipt Date: 20110801
  Transmission Date: 20120608
  Serious: No
  Sender: FDA-Public Use
  Company Number: US-ABBOTT-11P-163-0843205-00

PATIENT
  Age: 39 Year
  Sex: Female

DRUGS (7)
  1. HUMIRA [Suspect]
     Indication: PSORIASIS
     Dates: start: 20110626
  2. NEXIUM [Concomitant]
     Indication: BARRETT'S OESOPHAGUS
  3. IBUPROFEN (ADVIL) [Concomitant]
     Indication: PAIN
  4. IBUPROFEN (ADVIL) [Concomitant]
     Indication: HEADACHE
  5. IBUPROFEN (ADVIL) [Concomitant]
  6. MULTIVITAMIN [Concomitant]
     Indication: PRODUCT USED FOR UNKNOWN INDICATION
     Dosage: DAILY
  7. CLARITIN-D [Concomitant]
     Indication: SEASONAL ALLERGY

REACTIONS (4)
  - CONTUSION [None]
  - MENSTRUATION IRREGULAR [None]
  - NASOPHARYNGITIS [None]
  - SINUSITIS [None]
